FAERS Safety Report 12189447 (Version 1)
Quarter: 2016Q1

REPORT INFORMATION
  Report Type: Spontaneous
  Country: CA (occurrence: CA)
  Receive Date: 20160317
  Receipt Date: 20160317
  Transmission Date: 20160526
  Serious: Yes (Other)
  Sender: FDA-Public Use
  Company Number: CA-ROCHE-1727637

PATIENT
  Sex: Female

DRUGS (10)
  1. XOLAIR [Suspect]
     Active Substance: OMALIZUMAB
     Indication: ASTHMA
     Route: 058
     Dates: start: 20150716
  2. ALENDRONATE TEVA [Concomitant]
     Active Substance: ALENDRONATE SODIUM
  3. XOLAIR [Suspect]
     Active Substance: OMALIZUMAB
     Route: 058
     Dates: start: 20160309
  4. AMLODIPINE [Concomitant]
     Active Substance: AMLODIPINE BESYLATE
  5. RHINOCORT [Concomitant]
     Active Substance: BUDESONIDE
  6. CRESTOR [Concomitant]
     Active Substance: ROSUVASTATIN CALCIUM
  7. MAVIK [Concomitant]
     Active Substance: TRANDOLAPRIL
  8. ADVAIR HFA [Concomitant]
     Active Substance: FLUTICASONE PROPIONATE\SALMETEROL XINAFOATE
  9. ELTROXIN [Concomitant]
     Active Substance: LEVOTHYROXINE
  10. PREDNISONE. [Concomitant]
     Active Substance: PREDNISONE

REACTIONS (7)
  - Obstructive airways disorder [Unknown]
  - Weight increased [Unknown]
  - Vital capacity decreased [Unknown]
  - Bronchial hyperreactivity [Unknown]
  - Asthma [Unknown]
  - Fatigue [Unknown]
  - Forced expiratory volume decreased [Unknown]
